FAERS Safety Report 19474870 (Version 5)
Quarter: 2022Q2

REPORT INFORMATION
  Report Type: Spontaneous
  Country: US (occurrence: US)
  Receive Date: 20210629
  Receipt Date: 20220523
  Transmission Date: 20220721
  Serious: Yes (Hospitalization)
  Sender: FDA-Public Use
  Company Number: US-SA-SAC20210624000740

PATIENT
  Age: 34 Year
  Sex: Female
  Weight: 162.8 kg

DRUGS (14)
  1. CERDELGA [Suspect]
     Active Substance: ELIGLUSTAT
     Indication: Gaucher^s disease
     Dosage: 84 MG, BID
     Route: 048
     Dates: start: 20151015
  2. CERDELGA [Suspect]
     Active Substance: ELIGLUSTAT
     Indication: Lipidosis
  3. VITAMINS NOS [Concomitant]
     Active Substance: VITAMINS
  4. FLUOXETINE [Concomitant]
     Active Substance: FLUOXETINE HYDROCHLORIDE
  5. CRYSELLE [Concomitant]
     Active Substance: ETHINYL ESTRADIOL\NORGESTREL
  6. TRAMADOL [Concomitant]
     Active Substance: TRAMADOL
  7. LORATADINE [Concomitant]
     Active Substance: LORATADINE
  8. IRON [Concomitant]
     Active Substance: IRON
  9. MOTRIN IB [Concomitant]
     Active Substance: IBUPROFEN
  10. VITAMIN C [Concomitant]
     Active Substance: ASCORBIC ACID
  11. ADVIL [Concomitant]
     Active Substance: IBUPROFEN
  12. FUROSEMIDE [Concomitant]
     Active Substance: FUROSEMIDE
  13. POTASSIUM [Concomitant]
     Active Substance: POTASSIUM
  14. THERA-M [Concomitant]

REACTIONS (3)
  - COVID-19 [Unknown]
  - Migraine [Unknown]
  - Product dose omission issue [Unknown]
